FAERS Safety Report 8931612 (Version 2)
Quarter: 2012Q4

REPORT INFORMATION
  Report Type: 
  Country: DE (occurrence: UY)
  Receive Date: 20121128
  Receipt Date: 20121206
  Transmission Date: 20130627
  Serious: Yes (Death)
  Sender: FDA-Public Use
  Company Number: DE-ACTELION-A-US2012-75272

PATIENT
  Sex: Female

DRUGS (1)
  1. VENTAVIS BAYER SCHERING [Suspect]
     Indication: PULMONARY HYPERTENSION
     Route: 055

REACTIONS (1)
  - General physical health deterioration [Fatal]
